FAERS Safety Report 6023753-8 (Version None)
Quarter: 2008Q4

REPORT INFORMATION
  Report Type: 
  Country: None (occurrence: None)
  Receive Date: 20081230
  Receipt Date: 20081218
  Transmission Date: 20090506
  Serious: Yes (Hospitalization)
  Sender: FDA-Public Use
  Company Number: US-AMGEN-QUU324694

PATIENT
  Sex: Female

DRUGS (3)
  1. ENBREL [Suspect]
     Indication: RHEUMATOID ARTHRITIS
     Route: 058
     Dates: start: 19990101
  2. METHOTREXATE [Concomitant]
     Route: 048
  3. REMICADE [Concomitant]
     Dates: start: 20050101

REACTIONS (4)
  - BACK PAIN [None]
  - INJECTION SITE ERYTHEMA [None]
  - INJECTION SITE URTICARIA [None]
  - RHEUMATOID ARTHRITIS [None]
